FAERS Safety Report 11538180 (Version 1)
Quarter: 2015Q3

REPORT INFORMATION
  Report Type: Spontaneous
  Country: US (occurrence: US)
  Receive Date: 20150922
  Receipt Date: 20150922
  Transmission Date: 20151125
  Serious: Yes (Other)
  Sender: FDA-Public Use
  Company Number: ALCN2015US005761

PATIENT
  Age: 11 Year
  Sex: Male

DRUGS (4)
  1. CYCLOPENTOLATE HCL [Suspect]
     Active Substance: CYCLOPENTOLATE HYDROCHLORIDE
     Indication: VITRITIS
  2. CYCLOPENTOLATE HCL [Suspect]
     Active Substance: CYCLOPENTOLATE HYDROCHLORIDE
     Indication: IRIDOCYCLITIS
     Dosage: UNK, Q6H
     Route: 047
  3. PRED FORTE [Suspect]
     Active Substance: PREDNISOLONE ACETATE
     Indication: IRIDOCYCLITIS
     Dosage: 1 DF, UNK
     Route: 047
  4. PRED FORTE [Suspect]
     Active Substance: PREDNISOLONE ACETATE
     Indication: VITRITIS

REACTIONS (4)
  - Cushing^s syndrome [Unknown]
  - Intraocular pressure increased [Unknown]
  - Cataract subcapsular [Unknown]
  - Incorrect drug administration duration [Unknown]
